FAERS Safety Report 4755655-9 (Version None)
Quarter: 2005Q3

REPORT INFORMATION
  Report Type: 
  Country: None (occurrence: None)
  Receive Date: 20050830
  Receipt Date: 20050615
  Transmission Date: 20060218
  Serious: No
  Sender: FDA-Public Use
  Company Number: US-BRISTOL-MYERS SQUIBB COMPANY-13006408

PATIENT

DRUGS (2)
  1. ABILIFY [Suspect]
     Indication: SCHIZOPHRENIA
  2. GEODON [Concomitant]
     Dosage: DOSE VALUE:  160 AT NIGHT

REACTIONS (1)
  - DRUG INEFFECTIVE [None]
